FAERS Safety Report 9301949 (Version 1)
Quarter: 2013Q2

REPORT INFORMATION
  Report Type: Spontaneous
  Country: JP (occurrence: JP)
  Receive Date: 20130521
  Receipt Date: 20130521
  Transmission Date: 20140414
  Serious: Yes (Hospitalization)
  Sender: FDA-Public Use
  Company Number: JP-ROXANE LABORATORIES, INC.-2013-RO-00807RO

PATIENT
  Age: 55 Year
  Sex: Female
  Weight: 62 kg

DRUGS (2)
  1. CYCLOPHOSPHAMIDE TABLETS USP [Suspect]
     Indication: BREAST CANCER
     Dosage: 100 MG
     Dates: start: 201002
  2. CAPECITABINE [Suspect]
     Indication: BREAST CANCER
     Dosage: 1800 MG
     Route: 048
     Dates: start: 2007

REACTIONS (3)
  - Posterior reversible encephalopathy syndrome [Unknown]
  - Encephalitis [Unknown]
  - Uterine cancer [Unknown]
